FAERS Safety Report 8222845-2 (Version None)
Quarter: 2012Q1

REPORT INFORMATION
  Report Type: 
  Country: None (occurrence: None)
  Receive Date: 20120320
  Receipt Date: 20120313
  Transmission Date: 20120608
  Serious: Yes (Hospitalization)
  Sender: FDA-Public Use
  Company Number: PHHY2012GB021973

PATIENT
  Sex: Female

DRUGS (6)
  1. SIMVASTATIN [Concomitant]
     Dosage: 80 MG, QD
     Route: 048
  2. GLICLAZIDE [Concomitant]
     Dosage: 80 MG, QD
     Route: 048
  3. DONEPEZIL HCL [Suspect]
     Dosage: 5 MG, QD
     Route: 048
  4. ASPIRIN [Concomitant]
     Dosage: 75 MG, QD
     Route: 048
  5. LEVOTHYROXINE SODIUM [Concomitant]
     Dosage: 100 UG, QD
     Route: 048
  6. METFORMIN HCL [Concomitant]
     Dosage: 500 MG, BID
     Route: 048

REACTIONS (3)
  - UNRESPONSIVE TO STIMULI [None]
  - BRADYCARDIA [None]
  - SYNCOPE [None]
